FAERS Safety Report 4754676-X (Version None)
Quarter: 2005Q3

REPORT INFORMATION
  Report Type: 
  Country: None (occurrence: None)
  Receive Date: 20050829
  Receipt Date: 20050607
  Transmission Date: 20060218
  Serious: Yes (Hospitalization)
  Sender: FDA-Public Use
  Company Number: US-MERCK-0506USA01420

PATIENT
  Age: 72 Year
  Sex: Female
  Weight: 64 kg

DRUGS (11)
  1. VIOXX [Suspect]
     Route: 048
     Dates: start: 19991001, end: 20010118
  2. VERAPAMIL [Concomitant]
     Route: 065
     Dates: start: 19980601
  3. SYNTHROID [Concomitant]
     Route: 065
     Dates: start: 19980401
  4. PRILOSEC [Concomitant]
     Route: 065
     Dates: start: 19980701
  5. PREMARIN [Concomitant]
     Route: 065
     Dates: start: 19981101
  6. CALCIUM (UNSPECIFIED) [Concomitant]
     Route: 065
  7. VITAMINS (UNSPECIFIED) [Concomitant]
     Route: 065
  8. BETAPACE [Concomitant]
     Route: 065
     Dates: start: 19980401
  9. VITAMIN E [Concomitant]
     Route: 065
  10. ZOCOR [Concomitant]
     Route: 048
     Dates: start: 19980401
  11. ASPIRIN [Concomitant]
     Route: 065

REACTIONS (1)
  - CEREBROVASCULAR ACCIDENT [None]
